FAERS Safety Report 7914091-4 (Version None)
Quarter: 2011Q4

REPORT INFORMATION
  Report Type: 
  Country: None (occurrence: None)
  Receive Date: 20111115
  Receipt Date: 20111110
  Transmission Date: 20120403
  Serious: Yes (Death, Other)
  Sender: FDA-Public Use
  Company Number: JP-ABBOTT-11P-087-0841747-00

PATIENT
  Sex: Female
  Weight: 57 kg

DRUGS (20)
  1. MELOXICAM [Concomitant]
     Indication: RHEUMATOID ARTHRITIS
     Route: 048
     Dates: start: 20091020
  2. MOSAPRIDE CITRATE HYDRATE [Concomitant]
     Indication: PRODUCT USED FOR UNKNOWN INDICATION
     Route: 048
     Dates: start: 20091020
  3. ATENOLOL [Concomitant]
     Indication: PRODUCT USED FOR UNKNOWN INDICATION
     Dates: start: 20091020
  4. ISONIAZID [Concomitant]
     Indication: ANTIBIOTIC PROPHYLAXIS
     Route: 048
     Dates: start: 20091020
  5. LORATADINE [Concomitant]
     Indication: PRODUCT USED FOR UNKNOWN INDICATION
     Route: 048
     Dates: start: 20091020
  6. ROSUVASTATIN CALCIUM [Concomitant]
     Indication: PRODUCT USED FOR UNKNOWN INDICATION
     Dates: start: 20091020, end: 20110511
  7. MAPROTILINE HYDROCHLORIDE [Concomitant]
     Indication: PRODUCT USED FOR UNKNOWN INDICATION
     Dates: start: 20091020, end: 20110511
  8. HUMIRA [Suspect]
     Indication: RHEUMATOID ARTHRITIS
     Route: 058
     Dates: start: 20090501, end: 20110506
  9. PREDNISOLONE [Concomitant]
     Indication: RHEUMATOID ARTHRITIS
     Route: 048
     Dates: start: 20091020
  10. AMOBARBITAL SODIUM [Concomitant]
     Indication: INSOMNIA
     Dates: start: 20091020, end: 20110511
  11. CALCIUM [Concomitant]
     Indication: HYPERLIPIDAEMIA
     Route: 048
     Dates: start: 20091020
  12. FLUNITRAZEPAM [Concomitant]
     Indication: INSOMNIA
     Dates: start: 20091020, end: 20110511
  13. BROMOVALERYLUREA [Concomitant]
     Indication: INSOMNIA
     Dates: start: 20091020, end: 20110511
  14. CHLORPROMAZINE HYDROCHLORIDE PROMETHAZINE HYDROCHLORIDE/PHENOBARBITAL [Concomitant]
     Indication: INSOMNIA
     Route: 048
     Dates: start: 20091020, end: 20100511
  15. CLOTIAZEPAM [Concomitant]
     Indication: INSOMNIA
     Dates: start: 20091020, end: 20110511
  16. HYDROCHLORIDE [Concomitant]
     Indication: INSOMNIA
     Dates: start: 20091020
  17. METHOTREXATE [Concomitant]
     Indication: RHEUMATOID ARTHRITIS
     Route: 048
     Dates: start: 20091020, end: 20110511
  18. UNKNOWN ANTIPSYCHOTIC DRUG [Suspect]
     Indication: PRODUCT USED FOR UNKNOWN INDICATION
     Dates: end: 20110511
  19. OMEPRAZOLE [Concomitant]
     Indication: PRODUCT USED FOR UNKNOWN INDICATION
     Route: 048
     Dates: start: 20091020
  20. RISPERIDONE [Concomitant]
     Indication: INSOMNIA
     Dates: start: 20091020, end: 20110511

REACTIONS (10)
  - NEUROLEPTIC MALIGNANT SYNDROME [None]
  - ACUTE RESPIRATORY DISTRESS SYNDROME [None]
  - RESPIRATORY FAILURE [None]
  - MALAISE [None]
  - DEHYDRATION [None]
  - HYPOXIA [None]
  - MYALGIA [None]
  - PNEUMONIA [None]
  - RESPIRATORY DISORDER [None]
  - MYOGLOBINURIA [None]
